FAERS Safety Report 23456464 (Version 2)
Quarter: 2024Q1

REPORT INFORMATION
  Report Type: Spontaneous
  Country: FR (occurrence: FR)
  Receive Date: 20240130
  Receipt Date: 20240315
  Transmission Date: 20240410
  Serious: Yes (Other)
  Sender: FDA-Public Use
  Company Number: FR-NOVOPROD-1141464

PATIENT
  Age: 72 Year
  Sex: Female

DRUGS (4)
  1. OZEMPIC [Suspect]
     Active Substance: SEMAGLUTIDE
     Dosage: 0.5 MG, QW
     Route: 030
     Dates: start: 20200725
  2. OZEMPIC [Suspect]
     Active Substance: SEMAGLUTIDE
     Indication: Diabetes mellitus
     Dosage: 0.25 MG
     Route: 030
  3. METFORMIN [Concomitant]
     Active Substance: METFORMIN HYDROCHLORIDE
     Indication: Diabetes mellitus
     Dosage: 500 MG
     Dates: start: 20230601
  4. LACTULOSE\MINERAL OIL\PARAFFIN [Concomitant]
     Active Substance: LACTULOSE\MINERAL OIL\PARAFFIN
     Indication: Product used for unknown indication
     Dosage: UNK
     Route: 048
     Dates: start: 20230601

REACTIONS (3)
  - Blood glucose increased [Unknown]
  - Device issue [Unknown]
  - Wrong technique in product usage process [Unknown]
